FAERS Safety Report 4773451-3 (Version None)
Quarter: 2005Q3

REPORT INFORMATION
  Report Type: 
  Country: None (occurrence: None)
  Receive Date: 20050920
  Receipt Date: 20050913
  Transmission Date: 20060218
  Serious: Yes (Other)
  Sender: FDA-Public Use
  Company Number: US-JNJFOC-20050903706

PATIENT
  Sex: Female

DRUGS (9)
  1. TYLENOL [Suspect]
  2. TYLENOL [Suspect]
     Indication: HEADACHE
  3. ASPIRIN [Concomitant]
  4. HYDROCHLOROTHIAZIDE [Concomitant]
  5. WELLBUTRIN [Concomitant]
  6. BENAZEPRIL HCL [Concomitant]
  7. BENAZEPRIL HCL [Concomitant]
  8. NASONEX [Concomitant]
  9. QVAR 40 [Concomitant]

REACTIONS (2)
  - ARRHYTHMIA [None]
  - PALPITATIONS [None]
